FAERS Safety Report 13860386 (Version 2)
Quarter: 2017Q3

REPORT INFORMATION
  Report Type: Spontaneous
  Country: GB (occurrence: GB)
  Receive Date: 20170811
  Receipt Date: 20170829
  Transmission Date: 20171127
  Serious: Yes (Hospitalization, Other)
  Sender: FDA-Public Use
  Company Number: GB-AUROBINDO-AUR-APL-2017-38531

PATIENT
  Age: 87 Year
  Sex: Male

DRUGS (14)
  1. CUBICIN [Suspect]
     Active Substance: DAPTOMYCIN
     Indication: LOCALISED INFECTION
     Dosage: 500 MG, DAILY
     Route: 042
     Dates: start: 20170227, end: 20170311
  2. DIHYDROCODEINE [Concomitant]
     Active Substance: DIHYDROCODEINE
     Indication: ANALGESIC THERAPY
     Dosage: QDS, WHEN NECESSARY
     Route: 048
  3. PREDNISOLONE. [Concomitant]
     Active Substance: PREDNISOLONE
     Indication: PRODUCT USED FOR UNKNOWN INDICATION
     Dosage: OD, PER ORAL
     Route: 048
  4. SENNA                              /00142201/ [Concomitant]
     Active Substance: SENNA LEAF
     Indication: LAXATIVE SUPPORTIVE CARE
     Dosage: 15 MG, HS
     Route: 048
  5. CUBICIN [Suspect]
     Active Substance: DAPTOMYCIN
     Dosage: 750 MG, DAILY
     Route: 042
     Dates: start: 20170311, end: 20170422
  6. AMLODIPINE [Concomitant]
     Active Substance: AMLODIPINE BESYLATE
     Indication: BLOOD PRESSURE MANAGEMENT
     Dosage: 5 MG, DAILY
     Route: 048
  7. DALTEPARIN [Concomitant]
     Active Substance: DALTEPARIN
     Indication: THROMBOSIS PROPHYLAXIS
     Dosage: 5000 UNITS, WHILE ON IV ANTIBIOTICS
     Route: 058
  8. PARACETAMOL [Concomitant]
     Active Substance: ACETAMINOPHEN
     Indication: PAIN
     Dosage: QDS, ACUTE TREATMENT
     Route: 048
  9. LINEZOLID 600 MG [Suspect]
     Active Substance: LINEZOLID
     Indication: DEVICE RELATED INFECTION
     Dosage: OD, PER ORAL (PO)
     Route: 048
     Dates: start: 20170422
  10. SODIUM CHLORIDE. [Suspect]
     Active Substance: SODIUM CHLORIDE
     Indication: MEDICATION DILUTION
     Dosage: ONCE A DAY
     Route: 042
     Dates: start: 20170227, end: 20170311
  11. LANSOPRAZOLE. [Concomitant]
     Active Substance: LANSOPRAZOLE
     Indication: PRODUCT USED FOR UNKNOWN INDICATION
     Dosage: 30 MG, QD
     Route: 065
  12. ACETAMINOPHEN. [Concomitant]
     Active Substance: ACETAMINOPHEN
     Indication: PAIN
     Dosage: 1 G, QD
     Route: 048
  13. CUBICIN [Suspect]
     Active Substance: DAPTOMYCIN
     Dosage: 700 MG, QD
     Route: 042
     Dates: start: 20170324, end: 20170508
  14. DF118 [Concomitant]
     Indication: PAIN
     Dosage: QDS, ACUTE TREATMENT
     Route: 048

REACTIONS (2)
  - Eosinophilic pneumonia [Recovering/Resolving]
  - Drug eruption [Recovering/Resolving]

NARRATIVE: CASE EVENT DATE: 20170425
